FAERS Safety Report 20231042 (Version 1)
Quarter: 2021Q4

REPORT INFORMATION
  Report Type: Spontaneous
  Country: MY (occurrence: MY)
  Receive Date: 20211227
  Receipt Date: 20211227
  Transmission Date: 20220303
  Serious: Yes (Other)
  Sender: FDA-Public Use
  Company Number: MY-PFIZER INC-202101791261

PATIENT
  Age: 29 Year
  Sex: Male

DRUGS (1)
  1. UNASYN [Suspect]
     Active Substance: AMPICILLIN SODIUM\SULBACTAM SODIUM
     Indication: Antibiotic therapy
     Dosage: 1500 MG, 3X/DAY
     Route: 042

REACTIONS (2)
  - Conjunctival haemorrhage [Recovering/Resolving]
  - Urticaria [Recovering/Resolving]
